FAERS Safety Report 15093652 (Version 1)
Quarter: 2018Q2

REPORT INFORMATION
  Report Type: Spontaneous
  Country: US (occurrence: US)
  Receive Date: 20180629
  Receipt Date: 20180629
  Transmission Date: 20180711
  Serious: No
  Sender: FDA-Public Use
  Company Number: US-TEVA-2018-US-917148

PATIENT
  Sex: Female

DRUGS (1)
  1. CLONAZEPAM. [Suspect]
     Active Substance: CLONAZEPAM
     Indication: PANIC ATTACK
     Route: 065

REACTIONS (7)
  - Influenza like illness [Unknown]
  - Pain [Unknown]
  - Wrong technique in product usage process [Unknown]
  - Panic attack [Unknown]
  - Sedation [Unknown]
  - Chest pain [Unknown]
  - Migraine [Unknown]
